FAERS Safety Report 24583766 (Version 2)
Quarter: 2024Q4

REPORT INFORMATION
  Report Type: Spontaneous
  Country: GR (occurrence: GR)
  Receive Date: 20241106
  Receipt Date: 20241111
  Transmission Date: 20250115
  Serious: Yes (Life-Threatening, Hospitalization, Other)
  Sender: ORGANON
  Company Number: GR-MedicalPharmaquality-2024123

PATIENT
  Age: 51 Year
  Sex: Male

DRUGS (1)
  1. EZETIMIBE [Suspect]
     Active Substance: EZETIMIBE
     Indication: Dyslipidaemia
     Dosage: UNK

REACTIONS (5)
  - Acute myocardial infarction [Recovered/Resolved]
  - Drug ineffective [Unknown]
  - Disease progression [Unknown]
  - Arteriosclerosis [Unknown]
  - Coronary artery disease [Unknown]
